FAERS Safety Report 16745293 (Version 9)
Quarter: 2021Q3

REPORT INFORMATION
  Report Type: Spontaneous
  Country: US (occurrence: US)
  Receive Date: 20190827
  Receipt Date: 20210908
  Transmission Date: 20211014
  Serious: No
  Sender: FDA-Public Use
  Company Number: US-PFIZER INC-2019365674

PATIENT
  Age: 75 Year
  Sex: Male
  Weight: 142 kg

DRUGS (2)
  1. LYRICA [Suspect]
     Active Substance: PREGABALIN
     Indication: RESTLESS LEGS SYNDROME
     Dosage: 150 MG, 2X/DAY
     Route: 048
     Dates: start: 201804, end: 2018
  2. LYRICA [Suspect]
     Active Substance: PREGABALIN
     Indication: NEUROPATHY PERIPHERAL
     Dosage: 150 MG, 2X/DAY (ONE MORNING AND ONE EVENING)
     Dates: start: 20181001

REACTIONS (7)
  - Somnolence [Not Recovered/Not Resolved]
  - Peripheral swelling [Unknown]
  - Insomnia [Recovered/Resolved]
  - Paraesthesia [Unknown]
  - Pain in extremity [Unknown]
  - Confusional state [Unknown]
  - Pruritus [Unknown]

NARRATIVE: CASE EVENT DATE: 20181001
